FAERS Safety Report 17427103 (Version 1)
Quarter: 2020Q1

REPORT INFORMATION
  Report Type: Spontaneous
  Country: US (occurrence: US)
  Receive Date: 20200218
  Receipt Date: 20200218
  Transmission Date: 20200409
  Serious: Yes (Other)
  Sender: FDA-Public Use
  Company Number: US-ASTRAZENECA-2020SE22061

PATIENT
  Sex: Male
  Weight: 67.1 kg

DRUGS (2)
  1. CALQUENCE [Suspect]
     Active Substance: ACALABRUTINIB
     Indication: MANTLE CELL LYMPHOMA
     Route: 048
     Dates: start: 201910
  2. LISINOPRIL. [Suspect]
     Active Substance: LISINOPRIL
     Indication: BLOOD PRESSURE ABNORMAL
     Route: 048
     Dates: start: 201505

REACTIONS (5)
  - Mantle cell lymphoma [Unknown]
  - Ear congestion [Recovering/Resolving]
  - Blood pressure increased [Recovered/Resolved]
  - Thrombosis [Unknown]
  - Deafness [Recovering/Resolving]
